FAERS Safety Report 5629434-4 (Version None)
Quarter: 2008Q1

REPORT INFORMATION
  Report Type: 
  Country: None (occurrence: None)
  Receive Date: 20080218
  Receipt Date: 20080208
  Transmission Date: 20080703
  Serious: Yes (Hospitalization)
  Sender: FDA-Public Use
  Company Number: IR-NOVOPROD-270889

PATIENT
  Sex: Male
  Weight: 91 kg

DRUGS (4)
  1. NOVOLOG MIX 70/30 [Suspect]
     Indication: INSULIN-REQUIRING TYPE 2 DIABETES MELLITUS
     Dosage: 54 IU, QD
     Route: 058
     Dates: start: 20070715, end: 20080108
  2. ASPIRIN [Concomitant]
     Dosage: 80 UNK, UNK
     Dates: start: 20060806
  3. ATORVASTATIN CALCIUM [Concomitant]
     Dosage: 20 UNK, UNK
     Dates: start: 20060806
  4. LOSARTAN POTASSIUM [Concomitant]
     Dosage: 25 UNK, UNK
     Dates: start: 20060806

REACTIONS (2)
  - FACIAL BONES FRACTURE [None]
  - HYPOGLYCAEMIA [None]
